FAERS Safety Report 4901790-1 (Version None)
Quarter: 2006Q1

REPORT INFORMATION
  Report Type: 
  Country: None (occurrence: None)
  Receive Date: 20060201
  Receipt Date: 20060201
  Transmission Date: 20060701
  Serious: Yes (Life-Threatening, Hospitalization)
  Sender: FDA-Public Use
  Company Number: None

PATIENT
  Age: 59 Year
  Sex: Male
  Weight: 91.6266 kg

DRUGS (4)
  1. PROPOFOL [Suspect]
     Indication: SEDATION
     Dosage: IV
     Route: 042
  2. ATENOLOL [Concomitant]
  3. CANDESARTAN [Concomitant]
  4. FLUNISOLIDE [Concomitant]

REACTIONS (2)
  - ANAESTHETIC COMPLICATION [None]
  - BRADYCARDIA [None]
